FAERS Safety Report 10986423 (Version 1)
Quarter: 2015Q2

REPORT INFORMATION
  Report Type: Spontaneous
  Country: US (occurrence: None)
  Receive Date: 20150403
  Receipt Date: 20150403
  Transmission Date: 20150821
  Serious: Yes (Other)
  Sender: FDA-Public Use
  Company Number: None

PATIENT
  Age: 24 Year
  Sex: Female
  Weight: 90.72 kg

DRUGS (2)
  1. IMPLANON [Suspect]
     Active Substance: ETONOGESTREL
     Indication: CONTRACEPTION
     Dates: start: 20120625, end: 20141222
  2. RECLIPSEN BIRTH CONTROL [Concomitant]

REACTIONS (12)
  - Menstrual disorder [None]
  - Malaise [None]
  - Back pain [None]
  - Narcolepsy [None]
  - Sleep disorder [None]
  - Arthralgia [None]
  - Headache [None]
  - Muscular weakness [None]
  - Irritability [None]
  - Feeling abnormal [None]
  - Fatigue [None]
  - Motor dysfunction [None]

NARRATIVE: CASE EVENT DATE: 20141204
